FAERS Safety Report 5213075-7 (Version None)
Quarter: 2007Q1

REPORT INFORMATION
  Report Type: 
  Country: None (occurrence: None)
  Receive Date: 20070119
  Receipt Date: 20070111
  Transmission Date: 20070707
  Serious: Yes (Hospitalization)
  Sender: FDA-Public Use
  Company Number: 2007PK00084

PATIENT
  Age: 55 Year
  Sex: Female
  Weight: 84 kg

DRUGS (3)
  1. NEXIUM [Suspect]
     Indication: PROPHYLAXIS
     Route: 048
     Dates: start: 20060914, end: 20060929
  2. BRUFEN [Suspect]
     Indication: PAIN
     Route: 048
     Dates: start: 20060914, end: 20060929
  3. ZINACEF [Suspect]
     Indication: PROPHYLAXIS
     Route: 042
     Dates: start: 20060914, end: 20060914

REACTIONS (2)
  - MIXED HEPATOCELLULAR-CHOLESTATIC INJURY [None]
  - RASH [None]
